FAERS Safety Report 17589349 (Version 2)
Quarter: 2021Q2

REPORT INFORMATION
  Report Type: Spontaneous
  Country: US (occurrence: US)
  Receive Date: 20200327
  Receipt Date: 20210413
  Transmission Date: 20210716
  Serious: No
  Sender: FDA-Public Use
  Company Number: US-ALLERGAN-1932769US

PATIENT
  Sex: Female

DRUGS (2)
  1. OTC EYE DROPS [Concomitant]
     Active Substance: UNSPECIFIED INGREDIENT
     Indication: DRY EYE
     Dosage: UNK, PRN
     Route: 047
  2. LUMIGAN [Suspect]
     Active Substance: BIMATOPROST
     Indication: INTRAOCULAR PRESSURE TEST
     Dosage: UNK UNK, SINGLE
     Route: 047
     Dates: start: 20190801, end: 20190801

REACTIONS (1)
  - Product storage error [Unknown]
